FAERS Safety Report 23949399 (Version 1)
Quarter: 2024Q2

REPORT INFORMATION
  Report Type: Report from Study
  Country: JP (occurrence: JP)
  Receive Date: 20240607
  Receipt Date: 20240607
  Transmission Date: 20240716
  Serious: Yes (Other)
  Sender: FDA-Public Use
  Company Number: JP-SUN PHARMACEUTICAL INDUSTRIES LTD-2024R1-450199

PATIENT
  Age: 27 Year
  Sex: Male

DRUGS (2)
  1. DOXYCYCLINE [Suspect]
     Active Substance: DOXYCYCLINE\DOXYCYCLINE HYCLATE
     Indication: Mycoplasma genitalium infection
     Dosage: 200 MILLIGRAM, DAILY
     Route: 065
  2. SITAFLOXACIN [Suspect]
     Active Substance: SITAFLOXACIN
     Indication: Mycoplasma genitalium infection
     Dosage: 200 MILLIGRAM
     Route: 065

REACTIONS (1)
  - Treatment failure [Unknown]
